FAERS Safety Report 8340335-3 (Version None)
Quarter: 2012Q2

REPORT INFORMATION
  Report Type: 
  Country: None (occurrence: None)
  Receive Date: 20120507
  Receipt Date: 20120427
  Transmission Date: 20120825
  Serious: Yes (Hospitalization)
  Sender: FDA-Public Use
  Company Number: SE-ASTRAZENECA-2012SE27563

PATIENT
  Sex: Female
  Weight: 84 kg

DRUGS (10)
  1. ATACAND [Suspect]
     Route: 048
     Dates: start: 20110101, end: 20110101
  2. ATACAND [Suspect]
     Route: 048
     Dates: start: 20110101, end: 20111207
  3. ATACAND [Suspect]
     Route: 048
     Dates: start: 20111207
  4. ATACAND [Suspect]
     Route: 048
     Dates: start: 20110101, end: 20110101
  5. ATACAND [Suspect]
     Route: 048
     Dates: start: 20101019, end: 20110101
  6. FUROSEMIDE [Suspect]
     Dosage: DAILY DOSAGE: 60 MG (AS NEEDED INCREASED TO 80 MG)
     Route: 048
     Dates: start: 20100101
  7. RAMIPRIL [Suspect]
     Route: 048
  8. ZOLPIDEM TARTRATE [Concomitant]
     Indication: SLEEP DISORDER THERAPY
     Route: 048
  9. ATACAND [Suspect]
     Indication: CARDIAC FAILURE
     Route: 048
     Dates: end: 20080101
  10. FUROSEMIDE [Suspect]
     Indication: CARDIAC FAILURE
     Route: 048
     Dates: end: 20080101

REACTIONS (11)
  - DYSPNOEA [None]
  - LEFT VENTRICULAR HYPERTROPHY [None]
  - COUGH [None]
  - DYSPHONIA [None]
  - MITRAL VALVE INCOMPETENCE [None]
  - LIMB DISCOMFORT [None]
  - SPUTUM INCREASED [None]
  - VERTIGO [None]
  - ANGIOEDEMA [None]
  - HOT FLUSH [None]
  - BLOOD SODIUM DECREASED [None]
